FAERS Safety Report 8815383 (Version 3)
Quarter: 2014Q3

REPORT INFORMATION
  Report Type: Spontaneous
  Country: US (occurrence: US)
  Receive Date: 20120928
  Receipt Date: 20140827
  Transmission Date: 20150326
  Serious: Yes (Hospitalization, Other)
  Sender: FDA-Public Use
  Company Number: US-009507513-2012SP024805

PATIENT
  Sex: Female
  Weight: 91.61 kg

DRUGS (2)
  1. NUVARING [Suspect]
     Active Substance: ETHINYL ESTRADIOL\ETONOGESTREL
     Indication: CONTRACEPTION
     Dosage: IN FOR 3 WEEKS, OUT FOR 1 WEEK
     Route: 067
     Dates: start: 20100425, end: 20100627
  2. PROVENTIL [Concomitant]
     Active Substance: ALBUTEROL
     Indication: PRODUCT USED FOR UNKNOWN INDICATION
     Dosage: UNK
     Dates: start: 1992

REACTIONS (17)
  - Palpitations [Unknown]
  - Anticoagulation drug level below therapeutic [Unknown]
  - Pulmonary embolism [Unknown]
  - Upper respiratory tract infection [Unknown]
  - Pulmonary infarction [Unknown]
  - Anticoagulation drug level below therapeutic [Unknown]
  - Pain in extremity [Unknown]
  - Abscess limb [Unknown]
  - Abortion spontaneous [Unknown]
  - International normalised ratio decreased [Unknown]
  - Abortion spontaneous [Unknown]
  - Paraesthesia [Unknown]
  - Pericardial effusion [Unknown]
  - Tachycardia [Unknown]
  - Dermatosis [Unknown]
  - Chest pain [Unknown]
  - Dyspnoea [Unknown]

NARRATIVE: CASE EVENT DATE: 20100626
